FAERS Safety Report 4484194-8 (Version None)
Quarter: 2004Q4

REPORT INFORMATION
  Report Type: 
  Country: None (occurrence: None)
  Receive Date: 20041025
  Receipt Date: 20041018
  Transmission Date: 20050328
  Serious: Yes (Hospitalization)
  Sender: FDA-Public Use
  Company Number: US-MERCK-0410USA02700

PATIENT

DRUGS (1)
  1. VYTORIN [Suspect]
     Route: 048
     Dates: start: 20040101

REACTIONS (1)
  - BLOOD GLUCOSE INCREASED [None]
